FAERS Safety Report 21717221 (Version 1)
Quarter: 2022Q4

REPORT INFORMATION
  Report Type: Report from Study
  Country: DE (occurrence: DE)
  Receive Date: 20221212
  Receipt Date: 20221212
  Transmission Date: 20230113
  Serious: Yes (Hospitalization, Other)
  Sender: FDA-Public Use
  Company Number: DE-JNJFOC-20221166983

PATIENT
  Age: 7 Decade
  Sex: Female

DRUGS (12)
  1. DEXAMETHASONE [Suspect]
     Active Substance: DEXAMETHASONE
     Indication: Plasma cell myeloma
     Dosage: DATE OF THE LAST DOSAGE BEFORE EVENT ONSET 14-JUL-2022
     Route: 065
     Dates: start: 20220217, end: 20220719
  2. REVLIMID [Suspect]
     Active Substance: LENALIDOMIDE
     Indication: Plasma cell myeloma
     Dosage: DATE OF THE LAST DOSAGE BEFORE EVENT ONSET 18/JUL/2022?LAST DOSAGE BEFORE EVENT ONSET 5 MG
     Route: 065
     Dates: start: 20220217, end: 20220719
  3. DARATUMUMAB [Suspect]
     Active Substance: DARATUMUMAB
     Indication: Plasma cell myeloma
     Dosage: DATE OF THE LAST DOSAGE BEFORE EVENT ONSET 14-JUL-2022?LAST DOSAGE BEFORE EVENT ONSET 1917 MG
     Route: 042
     Dates: start: 20220217, end: 20220719
  4. SULFAMETHOXAZOLE\TRIMETHOPRIM [Concomitant]
     Active Substance: SULFAMETHOXAZOLE\TRIMETHOPRIM
     Indication: Product used for unknown indication
     Route: 048
  5. METOPROLOL [Concomitant]
     Active Substance: METOPROLOL
     Indication: Product used for unknown indication
     Route: 048
  6. MARCUMAR [Concomitant]
     Active Substance: PHENPROCOUMON
     Indication: Product used for unknown indication
     Route: 048
  7. NALOXONE HYDROCHLORIDE\TILIDINE HYDROCHLORIDE [Concomitant]
     Active Substance: NALOXONE HYDROCHLORIDE\TILIDINE HYDROCHLORIDE
     Indication: Product used for unknown indication
     Route: 048
  8. ACYCLOVIR [Concomitant]
     Active Substance: ACYCLOVIR
     Indication: Product used for unknown indication
     Route: 048
  9. FOLIC ACID [Concomitant]
     Active Substance: FOLIC ACID
     Indication: Product used for unknown indication
     Route: 048
  10. OLODATEROL HYDROCHLORIDE\TIOTROPIUM BROMIDE MONOHYDRATE [Concomitant]
     Active Substance: OLODATEROL HYDROCHLORIDE\TIOTROPIUM BROMIDE MONOHYDRATE
     Indication: Product used for unknown indication
  11. METAMIZOLE [Concomitant]
     Active Substance: METAMIZOLE
     Indication: Product used for unknown indication
     Route: 048
  12. PANTOPRAZOLE [Concomitant]
     Active Substance: PANTOPRAZOLE
     Indication: Product used for unknown indication
     Route: 048

REACTIONS (1)
  - Urosepsis [Recovered/Resolved]

NARRATIVE: CASE EVENT DATE: 20220719
